FAERS Safety Report 15447458 (Version 1)
Quarter: 2018Q3

REPORT INFORMATION
  Report Type: Spontaneous
  Country: US (occurrence: US)
  Receive Date: 20180928
  Receipt Date: 20180928
  Transmission Date: 20181010
  Serious: Yes (Other)
  Sender: FDA-Public Use
  Company Number: US-LUNDBECK-DKLU2054891

PATIENT
  Age: 25 Year
  Sex: Female

DRUGS (4)
  1. NORTHERA [Suspect]
     Active Substance: DROXIDOPA
     Indication: AUTONOMIC NEUROPATHY
     Dosage: TITRATION SCHEDULE B
     Route: 048
     Dates: start: 20180919
  2. NORTHERA [Suspect]
     Active Substance: DROXIDOPA
     Indication: DIZZINESS
     Route: 048
     Dates: start: 20180924
  3. NORTHERA [Suspect]
     Active Substance: DROXIDOPA
     Indication: HYPOTENSION
  4. NORTHERA [Suspect]
     Active Substance: DROXIDOPA
     Indication: ORTHOSTATIC HYPOTENSION

REACTIONS (4)
  - Therapeutic response decreased [Unknown]
  - Tinnitus [Unknown]
  - Deafness transitory [Unknown]
  - Head discomfort [Unknown]

NARRATIVE: CASE EVENT DATE: 20180919
